FAERS Safety Report 10532828 (Version 2)
Quarter: 2015Q1

REPORT INFORMATION
  Report Type: Spontaneous
  Country: US (occurrence: US)
  Receive Date: 20141022
  Receipt Date: 20150206
  Transmission Date: 20150720
  Serious: Yes (Hospitalization, Other)
  Sender: FDA-Public Use
  Company Number: US-BAYER-2014-153031

PATIENT
  Age: 33 Year
  Sex: Female
  Weight: 76.19 kg

DRUGS (4)
  1. LIPITOR [Concomitant]
     Active Substance: ATORVASTATIN CALCIUM
     Indication: TYPE IIA HYPERLIPIDAEMIA
     Dosage: UNK
     Dates: start: 2008
  2. MIRENA [Suspect]
     Active Substance: LEVONORGESTREL
     Indication: CONTRACEPTION
     Dosage: 20 MCG/24HR, CONT
     Route: 015
     Dates: start: 200911, end: 201211
  3. METHOTREXATE [Concomitant]
     Active Substance: METHOTREXATE
     Indication: ECTOPIC PREGNANCY
  4. ASPIRIN. [Concomitant]
     Active Substance: ASPIRIN
     Indication: FACTOR V LEIDEN MUTATION
     Dosage: UNK
     Dates: start: 2008

REACTIONS (10)
  - Uterine perforation [None]
  - Post procedural discomfort [None]
  - Medical device pain [None]
  - Device dislocation [None]
  - Ectopic pregnancy with contraceptive device [None]
  - Injury [None]
  - Vaginal haemorrhage [None]
  - Vaginal haemorrhage [None]
  - Drug ineffective [None]
  - Abdominal pain lower [None]

NARRATIVE: CASE EVENT DATE: 20091121
